FAERS Safety Report 4359425-5 (Version None)
Quarter: 2004Q2

REPORT INFORMATION
  Report Type: 
  Country: None (occurrence: None)
  Receive Date: 20040512
  Receipt Date: 20040429
  Transmission Date: 20050107
  Serious: Yes (Hospitalization)
  Sender: FDA-Public Use
  Company Number: USA020617463

PATIENT
  Age: 52 Year
  Sex: Female

DRUGS (5)
  1. HUMATROPE [Suspect]
     Dosage: 0.3 MG/DAY
     Dates: start: 20020601
  2. DEPAKOTE [Concomitant]
  3. TOPAMAX [Concomitant]
  4. ATENOLOL [Concomitant]
  5. SYNTHROID [Concomitant]

REACTIONS (15)
  - ABNORMAL DREAMS [None]
  - BEDRIDDEN [None]
  - BIPOLAR DISORDER [None]
  - BLOOD TRIGLYCERIDES INCREASED [None]
  - BODY HEIGHT INCREASED [None]
  - DEVICE FAILURE [None]
  - DIZZINESS [None]
  - FATIGUE [None]
  - FEELING ABNORMAL [None]
  - IATROGENIC INJURY [None]
  - INJECTION SITE HAEMORRHAGE [None]
  - MUSCULAR WEAKNESS [None]
  - PAIN IN EXTREMITY [None]
  - PHARMACEUTICAL PRODUCT COMPLAINT [None]
  - SINUSITIS [None]
